FAERS Safety Report 23407311 (Version 1)
Quarter: 2024Q1

REPORT INFORMATION
  Report Type: Spontaneous
  Country: US (occurrence: US)
  Receive Date: 20240116
  Receipt Date: 20240116
  Transmission Date: 20240409
  Serious: Yes (Hospitalization)
  Sender: FDA-Public Use
  Company Number: US-AMGEN-USASP2024007549

PATIENT
  Sex: Female

DRUGS (2)
  1. TAVNEOS [Suspect]
     Active Substance: AVACOPAN
     Indication: Granulomatosis with polyangiitis
     Dosage: 30 MILLIGRAM, BID (TAKE 3 CAPSULES (30 MG) BY MOUTH DAILY WITH BREAKFAST FOR VASCULITIS)
     Route: 048
     Dates: start: 20230302
  2. TAVNEOS [Suspect]
     Active Substance: AVACOPAN
     Indication: Vasculitis

REACTIONS (1)
  - Hospitalisation [Unknown]
